FAERS Safety Report 5157499-5 (Version None)
Quarter: 2006Q4

REPORT INFORMATION
  Report Type: 
  Country: None (occurrence: None)
  Receive Date: 20061127
  Receipt Date: 20060330
  Transmission Date: 20070319
  Serious: Yes (Other)
  Sender: FDA-Public Use
  Company Number: 2006JP000811

PATIENT
  Age: 28 Year
  Sex: Female
  Weight: 55 kg

DRUGS (11)
  1. CEFAZOLIN [Suspect]
     Indication: DRUG USE FOR UNKNOWN INDICATION
     Dosage: 2G PER DAY
     Route: 042
     Dates: start: 20060317, end: 20060319
  2. VICCILLIN [Suspect]
     Indication: DRUG USE FOR UNKNOWN INDICATION
     Dosage: 4G PER DAY
     Route: 042
     Dates: start: 20060312, end: 20060316
  3. GLOBULIN [Concomitant]
     Dates: start: 20060312, end: 20060319
  4. SOLU-MEDROL [Concomitant]
     Dates: start: 20060319, end: 20060321
  5. PREDNISOLONE [Concomitant]
     Dates: start: 20060223
  6. UTEMERIN [Concomitant]
     Route: 042
     Dates: start: 20060312, end: 20060313
  7. DINOPROST [Concomitant]
     Dates: start: 20060313, end: 20060316
  8. VENOGLOBULIN [Concomitant]
     Indication: C-REACTIVE PROTEIN INCREASED
     Dosage: 20MG PER DAY
     Route: 042
     Dates: start: 20060312, end: 20060316
  9. METHERGINE [Concomitant]
  10. PREDONINE [Concomitant]
     Route: 048
     Dates: start: 20060310
  11. OXYTOCIN [Concomitant]
     Route: 042
     Dates: start: 20060316, end: 20060318

REACTIONS (6)
  - CAESAREAN SECTION [None]
  - ECLAMPSIA [None]
  - MEGAKARYOCYTES INCREASED [None]
  - NORMAL NEWBORN [None]
  - PLATELET COUNT DECREASED [None]
  - PREMATURE RUPTURE OF MEMBRANES [None]
